FAERS Safety Report 15373026 (Version 1)
Quarter: 2018Q3

REPORT INFORMATION
  Report Type: Spontaneous
  Country: US (occurrence: US)
  Receive Date: 20180912
  Receipt Date: 20180912
  Transmission Date: 20181010
  Serious: No
  Sender: FDA-Public Use
  Company Number: US-AUROBINDO-AUR-APU-2018-035772

PATIENT
  Sex: Female
  Weight: 50 kg

DRUGS (1)
  1. EZETIMIBE 10 MG [Suspect]
     Active Substance: EZETIMIBE
     Indication: PRODUCT USED FOR UNKNOWN INDICATION
     Dosage: ONE EVERY DAY
     Route: 065

REACTIONS (2)
  - Hypersensitivity [Unknown]
  - Gingival pain [Unknown]
